FAERS Safety Report 18990802 (Version 1)
Quarter: 2021Q1

REPORT INFORMATION
  Report Type: Spontaneous
  Country: US (occurrence: US)
  Receive Date: 20210310
  Receipt Date: 20210310
  Transmission Date: 20210420
  Serious: Yes (Hospitalization, Other)
  Sender: FDA-Public Use
  Company Number: US-SA-2021SA079620

PATIENT
  Age: 55 Year
  Sex: Male
  Weight: 61.22 kg

DRUGS (19)
  1. FABRAZYME [Suspect]
     Active Substance: AGALSIDASE BETA
     Indication: FABRY^S DISEASE
     Dosage: 70 MG, QOW
     Route: 042
     Dates: start: 20190730
  2. STERILE WATER [Concomitant]
     Active Substance: WATER
  3. XANAX [Concomitant]
     Active Substance: ALPRAZOLAM
  4. PLAVIX [Concomitant]
     Active Substance: CLOPIDOGREL BISULFATE
  5. LEVOTHYROXINE. [Concomitant]
     Active Substance: LEVOTHYROXINE
  6. DIPHENHYDRAMINE. [Concomitant]
     Active Substance: DIPHENHYDRAMINE
  7. ENBREL [Concomitant]
     Active Substance: ETANERCEPT
  8. SERTRALINE [Concomitant]
     Active Substance: SERTRALINE HYDROCHLORIDE
  9. MULTIVITAMINS [VITAMINS NOS] [Concomitant]
     Active Substance: VITAMINS
  10. EPINEPHRINE. [Concomitant]
     Active Substance: EPINEPHRINE
  11. VITAMIN D3 [Concomitant]
     Active Substance: CHOLECALCIFEROL
  12. NORMAL SALINE [Concomitant]
     Active Substance: SODIUM CHLORIDE
  13. CLOPIDOGREL [Concomitant]
     Active Substance: CLOPIDOGREL BISULFATE
  14. FABRAZYME [Suspect]
     Active Substance: AGALSIDASE BETA
     Indication: COMPLICATIONS OF TRANSPLANTED KIDNEY
  15. MELATONIN [Concomitant]
     Active Substance: MELATONIN
  16. BACTRIM [Concomitant]
     Active Substance: SULFAMETHOXAZOLE\TRIMETHOPRIM
  17. VITAMIN A NOS [Concomitant]
     Active Substance: VITAMIN A
  18. ASTAGRAF XL [Concomitant]
     Active Substance: TACROLIMUS
  19. MYCOPHENOLATE [Concomitant]
     Active Substance: MYCOPHENOLIC ACID

REACTIONS (2)
  - Product use in unapproved indication [Unknown]
  - Cardiac flutter [Unknown]

NARRATIVE: CASE EVENT DATE: 20190730
